FAERS Safety Report 9513134 (Version 3)
Quarter: 2013Q3

REPORT INFORMATION
  Report Type: Spontaneous
  Country: US (occurrence: US)
  Receive Date: 20130910
  Receipt Date: 20130923
  Transmission Date: 20140515
  Serious: No
  Sender: FDA-Public Use
  Company Number: US-PFIZER INC-2013259335

PATIENT
  Age: 49 Year
  Sex: Female
  Weight: 90.7 kg

DRUGS (5)
  1. XANAX [Suspect]
     Dosage: UNK
  2. ALPRAZOLAM [Suspect]
     Indication: ANXIETY
     Dosage: 1 MG, 3X/DAY
  3. ALPRAZOLAM [Suspect]
     Indication: PANIC DISORDER
  4. ALPRAZOLAM [Suspect]
     Indication: AGORAPHOBIA
  5. VENTOLIN HFA [Concomitant]
     Indication: ASTHMA
     Dosage: UNK, AS NEEDED

REACTIONS (4)
  - Drug ineffective [Unknown]
  - Anxiety [Unknown]
  - Agitation [Unknown]
  - Aggression [Unknown]
